FAERS Safety Report 8143383-1 (Version None)
Quarter: 2012Q1

REPORT INFORMATION
  Report Type: 
  Country: None (occurrence: None)
  Receive Date: 20120217
  Receipt Date: 20120208
  Transmission Date: 20120608
  Serious: No
  Sender: FDA-Public Use
  Company Number: FI-JNJFOC-20120100422

PATIENT
  Sex: Female

DRUGS (3)
  1. REMICADE [Suspect]
     Indication: HIDRADENITIS
     Route: 042
     Dates: start: 20070301
  2. REMICADE [Suspect]
     Indication: ACNE CONGLOBATA
     Route: 042
     Dates: start: 20070301
  3. PREDNISOLONE [Concomitant]

REACTIONS (1)
  - FIBROCYSTIC BREAST DISEASE [None]
